FAERS Safety Report 8302722-9 (Version None)
Quarter: 2012Q2

REPORT INFORMATION
  Report Type: 
  Country: None (occurrence: None)
  Receive Date: 20120420
  Receipt Date: 20120319
  Transmission Date: 20120825
  Serious: Yes (Other)
  Sender: FDA-Public Use
  Company Number: US-BAXTER-2012BAX000470

PATIENT

DRUGS (3)
  1. CYTOXAN [Suspect]
     Route: 065
  2. FLUDARABINE PHOSPHATE [Suspect]
     Route: 065
  3. RITUXIMAB [Suspect]
     Route: 065

REACTIONS (1)
  - NEOPLASM [None]
